FAERS Safety Report 5564137-6 (Version None)
Quarter: 2007Q4

REPORT INFORMATION
  Report Type: 
  Country: None (occurrence: None)
  Receive Date: 20071217
  Receipt Date: 20071205
  Transmission Date: 20080405
  Serious: Yes (Other)
  Sender: FDA-Public Use
  Company Number: JP-PFIZER INC-2007102753

PATIENT
  Age: 80 Year
  Sex: Male

DRUGS (5)
  1. NORVASC [Suspect]
     Route: 048
  2. ARICEPT [Suspect]
     Route: 048
  3. MUCOSTA [Concomitant]
     Route: 048
  4. EXCELASE [Concomitant]
     Route: 048
  5. LENDORMIN [Concomitant]
     Route: 048

REACTIONS (1)
  - BLOOD CREATINE PHOSPHOKINASE INCREASED [None]
